FAERS Safety Report 12592426 (Version 3)
Quarter: 2017Q3

REPORT INFORMATION
  Report Type: Spontaneous
  Country: US (occurrence: US)
  Receive Date: 20160726
  Receipt Date: 20170705
  Transmission Date: 20171127
  Serious: No
  Sender: FDA-Public Use
  Company Number: US-PFIZER INC-2016322827

PATIENT
  Age: 82 Year
  Sex: Male
  Weight: 99.77 kg

DRUGS (24)
  1. ADVAIR HFA [Concomitant]
     Active Substance: FLUTICASONE PROPIONATE\SALMETEROL XINAFOATE
     Dosage: 250 UG, 2X/DAY (250-50 MCG/DOSE; INHALE 1 PUFF INTO THE LUNG EVERY 12 HOURS)
  2. REVATIO [Suspect]
     Active Substance: SILDENAFIL CITRATE
     Dosage: 20 MG, 3X/DAY
  3. ZESTRIL [Concomitant]
     Active Substance: LISINOPRIL
     Dosage: 40 MG, 1X/DAY
     Route: 048
  4. KENALOG [Concomitant]
     Active Substance: TRIAMCINOLONE ACETONIDE
     Dosage: UNK
  5. ORENITRAM [Concomitant]
     Active Substance: TREPROSTINIL
     Dosage: UNK
  6. NOVOLOG [Concomitant]
     Active Substance: INSULIN ASPART
     Dosage: 100 IU/ML, UNK (INJECT INTO THE SKIN DOES NOT EXCEED 90 UNITS PER DAY ON A SLIDING SCALE)
  7. MIRALAX [Concomitant]
     Active Substance: POLYETHYLENE GLYCOL 3350
     Dosage: 17 G, ONCE EVERY EVENING
     Route: 048
  8. ZETIA [Concomitant]
     Active Substance: EZETIMIBE
     Dosage: 0.5 MG, 1X/DAY (TAKE 0.5 TABS BY MOUTH ONCE EVERY NIGHT AT BEDTIME)
     Route: 048
  9. ALPHAGAN P [Concomitant]
     Active Substance: BRIMONIDINE TARTRATE
     Dosage: 1 DF, 2X/DAY (PLACE 1 DROP INTO BOTH EYES EVERY 12 HOURS)
  10. LUMIGAN [Concomitant]
     Active Substance: BIMATOPROST
     Dosage: 1 DF, 1X/DAY (APPLY 1 DROP INTO EYE (S) ONCE OVERLY NIGHT AT BEDTIME)
  11. ARISTOCORT A [Concomitant]
     Dosage: UNK
  12. PSYLLIUM /01328801/ [Concomitant]
     Active Substance: PLANTAGO SEED
     Dosage: UNK, 1X/DAY (1 TSP ONCE DAILY)
     Route: 048
  13. REVATIO [Suspect]
     Active Substance: SILDENAFIL CITRATE
     Dosage: 40 MG, 3X/DAY
     Route: 048
  14. AZOPT [Concomitant]
     Active Substance: BRINZOLAMIDE
     Dosage: 1 DF, 2X/DAY (1 DROP INTO BOTH EYES EVERY 12 HOURS)
     Route: 047
  15. NORVASC [Concomitant]
     Active Substance: AMLODIPINE BESYLATE
     Dosage: 10 MG, 1X/DAY
     Route: 048
  16. ASPIRIN. [Concomitant]
     Active Substance: ASPIRIN
     Dosage: 81 MG, DAILY
     Route: 048
  17. LANTUS [Concomitant]
     Active Substance: INSULIN GLARGINE
     Dosage: 100 IU/ML, 1X/DAY (INJECT 35 UNIT INTO THE SKIN ONCE EVERY NIGHT AT BEDTIME)
  18. PRINIVIL [Concomitant]
     Active Substance: LISINOPRIL
     Dosage: 40 MG, 1X/DAY
     Route: 048
  19. SPIRIVA [Concomitant]
     Active Substance: TIOTROPIUM BROMIDE MONOHYDRATE
     Dosage: 18 UG, 1X/DAY (2 PUFFS INTO THE LUNGS ONCE DAILY)
  20. DEBROX [Concomitant]
     Active Substance: CARBAMIDE PEROXIDE
     Dosage: UNK
  21. REVATIO [Suspect]
     Active Substance: SILDENAFIL CITRATE
     Indication: PULMONARY ARTERIAL HYPERTENSION
     Dosage: 40 MG, 3X/DAY (REVATIO 20 MG TID X 8 WEEKS)
     Route: 048
  22. LIPITOR [Concomitant]
     Active Substance: ATORVASTATIN CALCIUM
     Dosage: 40 MG, 1X/DAY
     Route: 048
  23. BACTROBAN [Concomitant]
     Active Substance: MUPIROCIN\MUPIROCIN CALCIUM
     Dosage: UNK
  24. LASIX [Concomitant]
     Active Substance: FUROSEMIDE
     Dosage: 20 MG, ONCE EVERY OTHER DAY
     Route: 048

REACTIONS (2)
  - Product use issue [Unknown]
  - Drug ineffective [Unknown]
